FAERS Safety Report 7374078-X (Version None)
Quarter: 2011Q1

REPORT INFORMATION
  Report Type: 
  Country: None (occurrence: None)
  Receive Date: 20110325
  Receipt Date: 20110321
  Transmission Date: 20110831
  Serious: No
  Sender: FDA-Public Use
  Company Number: US-PFIZER INC-2011030193

PATIENT
  Sex: Male

DRUGS (9)
  1. FLECAINIDE [Concomitant]
     Dosage: UNK
  2. LIPITOR [Concomitant]
     Dosage: UNK
  3. LYRICA [Suspect]
     Indication: RESTLESS LEGS SYNDROME
     Dosage: 150 UNK, 2X/DAY
     Route: 048
     Dates: start: 20110112, end: 20110125
  4. PLAVIX [Concomitant]
     Dosage: UNK
  5. NEXIUM [Concomitant]
     Dosage: UNK
  6. DIOVAN HCT [Concomitant]
     Dosage: UNK
  7. DIGOXIN [Concomitant]
     Dosage: UNK
  8. GABAPENTIN [Suspect]
     Indication: RESTLESS LEGS SYNDROME
     Dosage: 600 UNK, 3X/DAY
     Route: 048
     Dates: start: 20101004
  9. COREG [Concomitant]
     Dosage: UNK

REACTIONS (2)
  - EYE PRURITUS [None]
  - VISION BLURRED [None]
